FAERS Safety Report 7713557-X (Version None)
Quarter: 2011Q3

REPORT INFORMATION
  Report Type: 
  Country: None (occurrence: None)
  Receive Date: 20110826
  Receipt Date: 20110805
  Transmission Date: 20111222
  Serious: Yes (Life-Threatening)
  Sender: FDA-Public Use
  Company Number: SK-JNJFOC-20110811172

PATIENT
  Age: 35 Year
  Sex: Female

DRUGS (5)
  1. IMURAN [Concomitant]
     Indication: COLITIS ULCERATIVE
     Dates: start: 20110101
  2. REMICADE [Suspect]
     Indication: COLITIS ULCERATIVE
     Route: 042
  3. FRAXIPARINE [Concomitant]
     Indication: PULMONARY EMBOLISM
     Route: 058
     Dates: start: 20100401
  4. MESALAMINE [Concomitant]
     Indication: COLITIS ULCERATIVE
     Dates: start: 20100801
  5. REMICADE [Suspect]
     Dosage: 4TH DOSE
     Route: 042
     Dates: start: 20110727

REACTIONS (5)
  - HYPOTENSION [None]
  - COUGH [None]
  - TACHYCARDIA [None]
  - RASH [None]
  - INFUSION RELATED REACTION [None]
